FAERS Safety Report 6996334-7 (Version None)
Quarter: 2010Q3

REPORT INFORMATION
  Report Type: 
  Country: None (occurrence: None)
  Receive Date: 20100918
  Receipt Date: 20090203
  Transmission Date: 20110219
  Serious: No
  Sender: FDA-Public Use
  Company Number: US-WYE-H08053609

PATIENT
  Sex: Female
  Weight: 59.02 kg

DRUGS (8)
  1. EFFEXOR XR [Suspect]
     Indication: HOT FLUSH
     Route: 048
     Dates: start: 20070501, end: 20070701
  2. EFFEXOR XR [Suspect]
     Route: 048
     Dates: start: 20070701, end: 20090101
  3. EFFEXOR XR [Suspect]
     Dosage: TAPERED DOWN TO 37.5 MG DAILY FOR ONE WEEK
     Route: 048
     Dates: start: 20090101, end: 20090125
  4. LISINOPRIL [Concomitant]
  5. CALCIUM [Concomitant]
  6. ZOMETA [Concomitant]
  7. TAMOXIFEN CITRATE [Concomitant]
  8. AROMASIN [Concomitant]

REACTIONS (15)
  - BALANCE DISORDER [None]
  - DIARRHOEA [None]
  - DRUG INEFFECTIVE FOR UNAPPROVED INDICATION [None]
  - DRUG WITHDRAWAL SYNDROME [None]
  - ERUCTATION [None]
  - FATIGUE [None]
  - FORMICATION [None]
  - INFLUENZA LIKE ILLNESS [None]
  - INSOMNIA [None]
  - MUSCLE TWITCHING [None]
  - NAUSEA [None]
  - NIGHTMARE [None]
  - PARAESTHESIA [None]
  - RESTLESS LEGS SYNDROME [None]
  - VERTIGO [None]
